FAERS Safety Report 14102248 (Version 11)
Quarter: 2019Q3

REPORT INFORMATION
  Report Type: Spontaneous
  Country: US (occurrence: US)
  Receive Date: 20171018
  Receipt Date: 20190701
  Transmission Date: 20191004
  Serious: Yes (Other)
  Sender: FDA-Public Use
  Company Number: US-PFIZER INC-2017442523

PATIENT
  Age: 65 Year
  Sex: Female
  Weight: 70 kg

DRUGS (14)
  1. DEXILANT [Concomitant]
     Active Substance: DEXLANSOPRAZOLE
     Indication: GASTROOESOPHAGEAL REFLUX DISEASE
  2. VITAMIN B12 [Concomitant]
     Active Substance: CYANOCOBALAMIN
     Indication: SUPPLEMENTATION THERAPY
     Dosage: UNK UNK, DAILY
     Dates: start: 201808
  3. ELELYSO [Suspect]
     Active Substance: TALIGLUCERASE ALFA
     Dosage: 3200 IU IN 150ML NS OVER 1-1.5 HRS, EVERY TWO WEEKS
     Route: 042
     Dates: start: 20180830, end: 20180830
  4. ELELYSO [Suspect]
     Active Substance: TALIGLUCERASE ALFA
     Dosage: UNK
     Dates: start: 20190317
  5. ACETYLCYSTEINE. [Concomitant]
     Active Substance: ACETYLCYSTEINE
     Dosage: UNK UNK, AS NEEDED
  6. ELELYSO [Suspect]
     Active Substance: TALIGLUCERASE ALFA
     Dosage: 3200 IU IN 150ML NS OVER 1-1.5 HRS, EVERY TWO WEEKS
     Route: 042
     Dates: start: 20190414, end: 20190414
  7. ELELYSO [Suspect]
     Active Substance: TALIGLUCERASE ALFA
     Dosage: 3200 IU IN 150ML NS OVER 1-1.5 HRS, EVERY TWO WEEKS
     Dates: start: 20190331, end: 20190331
  8. ELELYSO [Suspect]
     Active Substance: TALIGLUCERASE ALFA
     Dosage: 3200 IU IN 150ML NS OVER 1-1.5 HRS, EVERY TWO WEEKS
     Route: 042
     Dates: start: 20190428, end: 20190428
  9. ELELYSO [Suspect]
     Active Substance: TALIGLUCERASE ALFA
     Indication: GAUCHER^S DISEASE TYPE I
     Dosage: 3200 IU IN 150ML NS OVER 1-1.5 HRS, EVERY TWO WEEKS
     Route: 042
     Dates: start: 20170111
  10. ELELYSO [Suspect]
     Active Substance: TALIGLUCERASE ALFA
     Dosage: UNK
     Dates: start: 20190331
  11. DEXILANT [Concomitant]
     Active Substance: DEXLANSOPRAZOLE
     Indication: GASTROOESOPHAGEAL REFLUX DISEASE
     Dosage: 60 MG, DAILY
     Dates: start: 201208
  12. ELELYSO [Suspect]
     Active Substance: TALIGLUCERASE ALFA
     Dosage: UNK
     Dates: start: 20190216
  13. ELELYSO [Suspect]
     Active Substance: TALIGLUCERASE ALFA
     Dosage: UNK
     Dates: start: 20190303
  14. LANSOPRAZOLE. [Concomitant]
     Active Substance: LANSOPRAZOLE
     Dosage: 30 MG, ONCE A DAY, SOMETIMES TWICE A DAY)

REACTIONS (25)
  - Gait disturbance [Recovered/Resolved]
  - Headache [Recovered/Resolved]
  - Pain [Unknown]
  - Somnolence [Recovered/Resolved]
  - Deafness bilateral [Not Recovered/Not Resolved]
  - Temporal arteritis [Recovering/Resolving]
  - Arthralgia [Recovered/Resolved]
  - Gastroenteritis viral [Recovered/Resolved]
  - Nausea [Recovered/Resolved]
  - Chills [Recovered/Resolved]
  - Headache [Recovered/Resolved]
  - Rhinovirus infection [Recovered/Resolved]
  - Vertigo [Recovered/Resolved]
  - Influenza like illness [Recovering/Resolving]
  - Fall [Unknown]
  - Vomiting [Recovered/Resolved]
  - Dizziness [Recovered/Resolved]
  - Pain in extremity [Recovered/Resolved]
  - Pyrexia [Recovered/Resolved]
  - Vomiting [Recovered/Resolved]
  - Polymyalgia rheumatica [Recovering/Resolving]
  - Chills [Recovered/Resolved]
  - Nasopharyngitis [Not Recovered/Not Resolved]
  - Pyrexia [Recovered/Resolved]
  - Somnolence [Recovered/Resolved]

NARRATIVE: CASE EVENT DATE: 20170805
